FAERS Safety Report 7569246-8 (Version None)
Quarter: 2011Q2

REPORT INFORMATION
  Report Type: 
  Country: None (occurrence: None)
  Receive Date: 20110623
  Receipt Date: 20110616
  Transmission Date: 20111010
  Serious: Yes (Hospitalization)
  Sender: FDA-Public Use
  Company Number: PHHO2011US10454

PATIENT
  Sex: Female
  Weight: 93.9 kg

DRUGS (5)
  1. OXYCODONE HCL [Concomitant]
  2. AFINITOR [Suspect]
     Indication: BILE DUCT CANCER
     Dosage: 5 MG, M-W-F
     Route: 048
     Dates: start: 20110512
  3. CISPLATIN [Suspect]
     Indication: BILE DUCT CANCER
     Dosage: 12.5 MG/M2, DAYS 1+8
     Route: 042
     Dates: start: 20110512
  4. GEMCITABINE [Suspect]
     Indication: BILE DUCT CANCER
     Dosage: 600 MG/M2, DAYS 1+8
     Route: 042
     Dates: start: 20110512
  5. SENOKOT [Concomitant]

REACTIONS (3)
  - PYREXIA [None]
  - DILATATION INTRAHEPATIC DUCT ACQUIRED [None]
  - PORTAL VEIN THROMBOSIS [None]
